FAERS Safety Report 17461467 (Version 1)
Quarter: 2020Q1

REPORT INFORMATION
  Report Type: Spontaneous
  Country: US (occurrence: US)
  Receive Date: 20200226
  Receipt Date: 20200226
  Transmission Date: 20200409
  Serious: Yes (Other)
  Sender: FDA-Public Use
  Company Number: US-PFIZER INC-2020078888

PATIENT
  Age: 58 Year
  Sex: Female

DRUGS (3)
  1. CEFTRIAXONE SODIUM. [Suspect]
     Active Substance: CEFTRIAXONE SODIUM
     Indication: MYELITIS
     Dosage: 2 G, DAILY
     Route: 042
     Dates: start: 198912
  2. CEFTRIAXONE SODIUM. [Suspect]
     Active Substance: CEFTRIAXONE SODIUM
     Indication: LYME DISEASE
     Dosage: 2 G, 2X/DAY
     Route: 042
     Dates: start: 198904
  3. CEFTRIAXONE SODIUM. [Suspect]
     Active Substance: CEFTRIAXONE SODIUM
     Dosage: 4 G, DAILY (INCREASED DOSE)
     Route: 042
     Dates: start: 199007

REACTIONS (4)
  - Jarisch-Herxheimer reaction [Recovered/Resolved]
  - Condition aggravated [Recovered/Resolved]
  - Encephalopathy [Recovered/Resolved]
  - Optic neuropathy [Recovered/Resolved]

NARRATIVE: CASE EVENT DATE: 198904
